FAERS Safety Report 15144014 (Version 1)
Quarter: 2018Q3

REPORT INFORMATION
  Report Type: Spontaneous
  Country: US (occurrence: US)
  Receive Date: 20180713
  Receipt Date: 20180713
  Transmission Date: 20181010
  Serious: Yes (Other)
  Sender: FDA-Public Use
  Company Number: US-SHIRE-US201824657

PATIENT
  Sex: Male
  Weight: 81.63 kg

DRUGS (2)
  1. AMBIEN [Concomitant]
     Active Substance: ZOLPIDEM TARTRATE
     Indication: SLEEP DISORDER
  2. ADDERALL XR [Suspect]
     Active Substance: AMPHETAMINE ASPARTATE\AMPHETAMINE SULFATE\DEXTROAMPHETAMINE SACCHARATE\DEXTROAMPHETAMINE SULFATE
     Indication: DISTURBANCE IN ATTENTION
     Dosage: 10 MG, 3X/DAY:TID
     Route: 048
     Dates: start: 2012, end: 2017

REACTIONS (7)
  - Confusional state [Not Recovered/Not Resolved]
  - Anxiety [Not Recovered/Not Resolved]
  - Suicidal ideation [Not Recovered/Not Resolved]
  - Feeling abnormal [Not Recovered/Not Resolved]
  - Dyspnoea [Not Recovered/Not Resolved]
  - Speech disorder [Not Recovered/Not Resolved]
  - Abnormal behaviour [Not Recovered/Not Resolved]

NARRATIVE: CASE EVENT DATE: 2015
